FAERS Safety Report 4802833-6 (Version None)
Quarter: 2005Q4

REPORT INFORMATION
  Report Type: 
  Country: None (occurrence: None)
  Receive Date: 20051019
  Receipt Date: 20051012
  Transmission Date: 20060501
  Serious: Yes (Other)
  Sender: FDA-Public Use
  Company Number: 2005UW15452

PATIENT
  Age: 87 Year
  Sex: Female
  Weight: 71.2 kg

DRUGS (10)
  1. TAMOXIFEN [Suspect]
     Indication: BREAST CANCER
     Route: 048
     Dates: start: 19860101, end: 20050901
  2. ZOLOFT [Concomitant]
  3. TRAZODONE HCL [Concomitant]
  4. FOSAMAX [Concomitant]
  5. AGRINOT [Concomitant]
  6. VICODIN [Concomitant]
  7. COZAAR [Concomitant]
  8. PROTONIX [Concomitant]
  9. LOPRESSOR [Concomitant]
  10. FOLIC ACID [Concomitant]

REACTIONS (4)
  - CATARACT [None]
  - KNEE OPERATION [None]
  - LOWER LIMB FRACTURE [None]
  - SPINAL FRACTURE [None]
